FAERS Safety Report 13655398 (Version 7)
Quarter: 2021Q1

REPORT INFORMATION
  Report Type: Other
  Country: US (occurrence: US)
  Receive Date: 20170615
  Receipt Date: 20210219
  Transmission Date: 20210419
  Serious: Yes (Hospitalization, Other)
  Sender: FDA-Public Use
  Company Number: US-ROCHE-1732173

PATIENT
  Age: 63 Year
  Sex: Female
  Weight: 81.72 kg

DRUGS (9)
  1. ACTEMRA [Suspect]
     Active Substance: TOCILIZUMAB
     Route: 058
     Dates: end: 2018
  2. CORTIZONE 10 [Concomitant]
     Active Substance: HYDROCORTISONE
  3. ACTEMRA [Suspect]
     Active Substance: TOCILIZUMAB
     Indication: RHEUMATOID ARTHRITIS
     Dosage: INFUSION ONCE A MONTH?EXPIRY DATE: /DEC/2018
     Route: 058
     Dates: end: 201506
  4. LEFLUNOMIDE. [Suspect]
     Active Substance: LEFLUNOMIDE
     Indication: PRODUCT USED FOR UNKNOWN INDICATION
     Route: 065
  5. ACTEMRA [Suspect]
     Active Substance: TOCILIZUMAB
     Route: 058
     Dates: end: 2017
  6. ACTEMRA [Suspect]
     Active Substance: TOCILIZUMAB
     Route: 058
  7. ACTEMRA [Suspect]
     Active Substance: TOCILIZUMAB
     Route: 058
     Dates: start: 2015
  8. ACTEMRA [Suspect]
     Active Substance: TOCILIZUMAB
     Route: 058
  9. ACTEMRA [Suspect]
     Active Substance: TOCILIZUMAB
     Route: 058
     Dates: start: 201806

REACTIONS (27)
  - Lower limb fracture [Unknown]
  - Feeling abnormal [Unknown]
  - Groin pain [Recovered/Resolved]
  - Pain in extremity [Recovered/Resolved]
  - Arthritis infective [Unknown]
  - Post procedural infection [Recovered/Resolved]
  - Incision site impaired healing [Recovered/Resolved]
  - Pain [Recovered/Resolved]
  - Arthritis infective [Not Recovered/Not Resolved]
  - Dizziness [Unknown]
  - Malaise [Unknown]
  - Asthenia [Unknown]
  - Arthritis infective [Not Recovered/Not Resolved]
  - Balance disorder [Unknown]
  - Fall [Unknown]
  - Joint dislocation [Not Recovered/Not Resolved]
  - Joint swelling [Unknown]
  - Back pain [Recovering/Resolving]
  - Localised infection [Unknown]
  - Rheumatoid arthritis [Unknown]
  - Fracture [Not Recovered/Not Resolved]
  - Illness [Unknown]
  - Arthralgia [Unknown]
  - Arthralgia [Recovered/Resolved]
  - Hip surgery [Unknown]
  - Insomnia [Unknown]
  - Drug ineffective [Unknown]

NARRATIVE: CASE EVENT DATE: 201506
